FAERS Safety Report 18440234 (Version 1)
Quarter: 2020Q4

REPORT INFORMATION
  Report Type: Spontaneous
  Country: GB (occurrence: GB)
  Receive Date: 20201029
  Receipt Date: 20201029
  Transmission Date: 20210114
  Serious: Yes (Other)
  Sender: FDA-Public Use
  Company Number: GB-TEVA-2020-GB-1841833

PATIENT
  Age: 31 Year
  Sex: Male
  Weight: 76 kg

DRUGS (7)
  1. CALAMINE [Concomitant]
     Active Substance: CALAMINE\FERRIC OXIDE RED\ZINC OXIDE
     Dosage: 100 GRAM
     Dates: start: 20200720, end: 20200720
  2. CLENIL MODULITE [Concomitant]
     Active Substance: BECLOMETHASONE DIPROPIONATE
     Dosage: 4 DOSAGE FORMS ,PUFFS
     Dates: start: 20200917
  3. PARACETAMOL [Concomitant]
     Active Substance: ACETAMINOPHEN
     Dosage: ONE OR TWO TO BE TAKEN UP TO FOUR TIMES DAILY.
     Dates: start: 20200623, end: 20200630
  4. SALBUTAMOL [Concomitant]
     Active Substance: ALBUTEROL
     Dosage: ONE OR TWO PUFFS UP TO FOUR TIMES A DAY.
     Route: 055
     Dates: start: 20200917
  5. IBUPROFEN. [Suspect]
     Active Substance: IBUPROFEN
     Dosage: 200 MG
     Dates: start: 20200917
  6. FUCIDIN [Concomitant]
     Active Substance: FUSIDATE SODIUM
     Dosage: 2 DOSAGE FORMS ,APPLY
     Route: 061
     Dates: start: 20200917
  7. CHLORHEXIDINE GLUCONATE. [Concomitant]
     Active Substance: CHLORHEXIDINE GLUCONATE
     Dosage: 10 ML ,RINSE MOUTH THOROUGHLY FOR 1 MINUTE A...
     Dates: start: 20200623, end: 20200721

REACTIONS (1)
  - Swollen tongue [Recovered/Resolved]

NARRATIVE: CASE EVENT DATE: 20200920
